FAERS Safety Report 4430302-4 (Version None)
Quarter: 2004Q3

REPORT INFORMATION
  Report Type: 
  Country: None (occurrence: None)
  Receive Date: 20040816
  Receipt Date: 20040806
  Transmission Date: 20050211
  Serious: Yes (Hospitalization, Disabling, Other)
  Sender: FDA-Public Use
  Company Number: 2004-03-1909

PATIENT
  Age: 54 Year
  Sex: Male
  Weight: 83 kg

DRUGS (3)
  1. INTRON A [Suspect]
     Indication: NON-HODGKIN'S LYMPHOMA
     Dosage: SEE IMAGE
     Route: 058
     Dates: start: 19991101, end: 20011101
  2. INTRON A [Suspect]
     Indication: NON-HODGKIN'S LYMPHOMA
     Dosage: SEE IMAGE
     Route: 058
     Dates: start: 20020101, end: 20020401
  3. PEG-INTRON [Suspect]
     Indication: NON-HODGKIN'S LYMPHOMA
     Dosage: 100 MCG QW SUBCUTANEOUS
     Route: 058
     Dates: start: 20020401, end: 20020701

REACTIONS (6)
  - CHEST PAIN [None]
  - DRUG RESISTANCE [None]
  - MALAISE [None]
  - MYALGIA [None]
  - PLEURAL EFFUSION [None]
  - PLEURISY [None]
